FAERS Safety Report 11522655 (Version 1)
Quarter: 2015Q3

REPORT INFORMATION
  Report Type: Spontaneous
  Country: US (occurrence: US)
  Receive Date: 20150903
  Receipt Date: 20150903
  Transmission Date: 20151125
  Serious: No
  Sender: FDA-Public Use
  Company Number: US-ELI_LILLY_AND_COMPANY-US201301008887

PATIENT
  Age: 50 Year
  Sex: Female

DRUGS (3)
  1. PROPRANOLOL [Concomitant]
     Active Substance: PROPRANOLOL\PROPRANOLOL HYDROCHLORIDE
  2. CYMBALTA [Suspect]
     Active Substance: DULOXETINE HYDROCHLORIDE
     Indication: DEPRESSION
     Dosage: 60 MG, QD
     Dates: end: 20130122
  3. OMEPRAZOLE. [Concomitant]
     Active Substance: OMEPRAZOLE

REACTIONS (8)
  - Palpitations [Not Recovered/Not Resolved]
  - Abnormal behaviour [Unknown]
  - Irritability [Unknown]
  - Nausea [Unknown]
  - Dizziness [Not Recovered/Not Resolved]
  - Palpitations [Unknown]
  - Nausea [Not Recovered/Not Resolved]
  - Drug withdrawal syndrome [Unknown]

NARRATIVE: CASE EVENT DATE: 201204
